FAERS Safety Report 17326415 (Version 1)
Quarter: 2020Q1

REPORT INFORMATION
  Report Type: Spontaneous
  Country: US (occurrence: US)
  Receive Date: 20200127
  Receipt Date: 20200127
  Transmission Date: 20200409
  Serious: No
  Sender: FDA-Public Use
  Company Number: US-009507513-2001USA008644

PATIENT
  Age: 52 Year
  Sex: Male

DRUGS (3)
  1. CUBICIN [Suspect]
     Active Substance: DAPTOMYCIN
     Indication: STAPHYLOCOCCAL INFECTION
     Dosage: STRENGTH: 8MG/KG, DAILY
     Route: 042
     Dates: start: 201808, end: 2018
  2. VANCOMYCIN [Suspect]
     Active Substance: VANCOMYCIN
     Indication: STAPHYLOCOCCAL INFECTION
     Dosage: 1.25 GRAM, DAILY
     Dates: start: 201808
  3. CUBICIN [Suspect]
     Active Substance: DAPTOMYCIN
     Indication: DRUG TOXICITY PROPHYLAXIS

REACTIONS (1)
  - Off label use [Unknown]

NARRATIVE: CASE EVENT DATE: 201808
